FAERS Safety Report 14241277 (Version 3)
Quarter: 2018Q1

REPORT INFORMATION
  Report Type: Report from Study
  Country: JP (occurrence: JP)
  Receive Date: 20171130
  Receipt Date: 20180201
  Transmission Date: 20180508
  Serious: Yes (Hospitalization)
  Sender: FDA-Public Use
  Company Number: US-ASTRAZENECA-2017SF21391

PATIENT
  Age: 842 Month
  Sex: Female
  Weight: 56.7 kg

DRUGS (2)
  1. AZD2171 [Suspect]
     Active Substance: CEDIRANIB
     Indication: OVARIAN EPITHELIAL CANCER
     Route: 048
     Dates: start: 20171018, end: 20171113
  2. AZD2281 [Suspect]
     Active Substance: OLAPARIB
     Indication: MALIGNANT PERITONEAL NEOPLASM
     Route: 048
     Dates: start: 20171018, end: 20171113

REACTIONS (1)
  - Acute kidney injury [Not Recovered/Not Resolved]

NARRATIVE: CASE EVENT DATE: 20171113
